FAERS Safety Report 25484843 (Version 1)
Quarter: 2025Q2

REPORT INFORMATION
  Report Type: Spontaneous
  Country: CA (occurrence: CA)
  Receive Date: 20250626
  Receipt Date: 20250626
  Transmission Date: 20250717
  Serious: Yes (Death, Life-Threatening, Hospitalization, Disabling, Congenital Anomaly, Other)
  Sender: ANI
  Company Number: CA-ANIPHARMA-2025-CA-002040

PATIENT
  Age: 40 Year
  Sex: Female

DRUGS (12)
  1. CANDESARTAN CILEXETIL [Suspect]
     Active Substance: CANDESARTAN CILEXETIL
     Indication: Rheumatoid arthritis
  2. TRAZODONE [Suspect]
     Active Substance: TRAZODONE HYDROCHLORIDE
  3. TRETINOIN [Suspect]
     Active Substance: TRETINOIN
  4. TRIAMCINOLONE [Suspect]
     Active Substance: TRIAMCINOLONE
  5. PANTOPRAZOLE SODIUM [Suspect]
     Active Substance: PANTOPRAZOLE SODIUM
  6. CALCIUM CARBONATE [Suspect]
     Active Substance: CALCIUM CARBONATE
  7. METHOTREXATE [Suspect]
     Active Substance: METHOTREXATE
  8. TRAMADOL [Suspect]
     Active Substance: TRAMADOL
  9. PHENYLEPHRINE [Suspect]
     Active Substance: PHENYLEPHRINE
  10. CELECOXIB [Suspect]
     Active Substance: CELECOXIB
  11. SODIUM AUROTIOSULFATE [Suspect]
     Active Substance: SODIUM AUROTIOSULFATE
  12. TOPIRAMATE [Suspect]
     Active Substance: TOPIRAMATE

REACTIONS (4)
  - Abdominal distension [Not Recovered/Not Resolved]
  - Exposure during pregnancy [Not Recovered/Not Resolved]
  - Maternal exposure during pregnancy [Not Recovered/Not Resolved]
  - Product use in unapproved indication [Unknown]
